FAERS Safety Report 9785261 (Version 3)
Quarter: 2014Q1

REPORT INFORMATION
  Report Type: Spontaneous
  Country: US (occurrence: US)
  Receive Date: 20131227
  Receipt Date: 20140324
  Transmission Date: 20141002
  Serious: Yes (Other)
  Sender: FDA-Public Use
  Company Number: US-BEH-2010026854

PATIENT
  Age: 41 Year
  Sex: Female

DRUGS (16)
  1. HIZENTRA [Suspect]
     Indication: IMMUNODEFICIENCY COMMON VARIABLE
     Route: 058
     Dates: start: 20101001
  2. HIZENTRA [Suspect]
     Dates: start: 20101009
  3. HIZENTRA [Suspect]
     Dates: start: 20101015
  4. HIZENTRA [Suspect]
     Dates: start: 20101022
  5. HYDROCORTISONE [Concomitant]
     Dosage: 100MG TO TREAT ADR BUT ALSO USED AS PREMEDICATION; DOSE LATER DROPPPED TO 50MG AS PRE-MEDICATION
     Dates: start: 20100210
  6. MULTIVITAMIN [Concomitant]
  7. PROPHYLACTIC ANTIBIOTICS (NOT SPECIFIED) [Concomitant]
  8. SOY PROBIOTIC [Concomitant]
  9. ASTHMA MEDICATION (NOT SPECIFIED) [Concomitant]
  10. LEVAQUIN [Concomitant]
     Indication: CYSTITIS
  11. LEVAQUIN [Concomitant]
     Indication: CYSTITIS
  12. PREDNISONE [Concomitant]
  13. FIORICET [Concomitant]
     Indication: MIGRAINE
  14. CLONAZEPAM [Concomitant]
     Indication: CONVULSION
  15. ZOFRAN [Concomitant]
     Indication: NAUSEA
  16. ACIDOPHILUS [Concomitant]

REACTIONS (35)
  - Convulsion [Unknown]
  - Oropharyngeal pain [Unknown]
  - Muscle tightness [Unknown]
  - Renal pain [Unknown]
  - Muscle tightness [Unknown]
  - Dyspnoea [Unknown]
  - Sinusitis [Recovered/Resolved]
  - Infusion site mass [Unknown]
  - Infusion site pain [Unknown]
  - Abdominal distension [Unknown]
  - Flatulence [Unknown]
  - Dyspnoea [Unknown]
  - Chest discomfort [Unknown]
  - Migraine [Unknown]
  - Fatigue [Unknown]
  - Lethargy [Unknown]
  - Respiratory tract congestion [Unknown]
  - Asthenia [Unknown]
  - Sinus headache [Unknown]
  - Nausea [Unknown]
  - Vomiting [Unknown]
  - Asthenia [Unknown]
  - Fatigue [Unknown]
  - Infusion site mass [Unknown]
  - Headache [Unknown]
  - Abdominal distension [Recovered/Resolved]
  - Infusion site mass [Unknown]
  - Abdominal pain [Unknown]
  - Pruritus [Unknown]
  - Infusion site pruritus [Unknown]
  - Infusion site discomfort [Unknown]
  - Infusion site rash [Unknown]
  - Chills [Unknown]
  - Pyrexia [Unknown]
  - Infusion site reaction [Unknown]
